FAERS Safety Report 16374702 (Version 1)
Quarter: 2019Q2

REPORT INFORMATION
  Report Type: Spontaneous
  Country: SE (occurrence: SE)
  Receive Date: 20190530
  Receipt Date: 20190530
  Transmission Date: 20190711
  Serious: Yes (Other)
  Sender: FDA-Public Use
  Company Number: SE-BAXTER-2019BAX010403

PATIENT
  Age: 69 Year
  Sex: Male

DRUGS (1)
  1. GLUCOSE-NA-K BAXTER 50 MG/ML INFUSIONSV?TSKA, L?SNING (GLUCOSE, ANHYDROUS) [Suspect]
     Active Substance: DEXTROSE\MAGNESIUM CHLORIDE\POTASSIUM CHLORIDE\SODIUM ACETATE\SODIUM CHLORIDE
     Indication: PRODUCT USED FOR UNKNOWN INDICATION
     Dosage: DOSE: 1 (UNITS NOT REPORTED)
     Route: 042
     Dates: start: 20180703, end: 20180703

REACTIONS (4)
  - Hyperkalaemia [Recovered/Resolved]
  - Condition aggravated [Recovered/Resolved]
  - Product label confusion [Recovered/Resolved]
  - Wrong product administered [Recovered/Resolved]

NARRATIVE: CASE EVENT DATE: 20180703
